FAERS Safety Report 9804563 (Version 1)
Quarter: 2014Q1

REPORT INFORMATION
  Report Type: Spontaneous
  Country: US (occurrence: US)
  Receive Date: 20140108
  Receipt Date: 20140108
  Transmission Date: 20141002
  Serious: No
  Sender: FDA-Public Use
  Company Number: US-009507513-1401USA002067

PATIENT
  Age: 7 Year
  Sex: Male
  Weight: 22.68 kg

DRUGS (1)
  1. CLARITIN CHEWABLE TABLETS [Suspect]
     Indication: HYPERSENSITIVITY
     Dosage: 10 MG, BID
     Route: 048
     Dates: start: 20131217

REACTIONS (1)
  - Overdose [Unknown]
